FAERS Safety Report 18230186 (Version 1)
Quarter: 2020Q3

REPORT INFORMATION
  Report Type: Spontaneous
  Country: US (occurrence: US)
  Receive Date: 20200903
  Receipt Date: 20200903
  Transmission Date: 20201103
  Serious: Yes (Other)
  Sender: FDA-Public Use
  Company Number: US-PURDUE-USA-2020-0164506

PATIENT
  Sex: Male

DRUGS (3)
  1. TRAMADOL                           /00599202/ [Suspect]
     Active Substance: TRAMADOL
     Indication: EXPOSURE DURING PREGNANCY
     Route: 064
  2. HYDROCODONE BITARTRATE AND ACETAMINOPHEN [Suspect]
     Active Substance: ACETAMINOPHEN\HYDROCODONE BITARTRATE
     Indication: EXPOSURE DURING PREGNANCY
     Route: 064
  3. MS CONTIN [Suspect]
     Active Substance: MORPHINE SULFATE
     Indication: EXPOSURE DURING PREGNANCY
     Route: 064

REACTIONS (5)
  - Low birth weight baby [Unknown]
  - Poor sucking reflex [Unknown]
  - Dependence [Unknown]
  - Autism spectrum disorder [Unknown]
  - Drug withdrawal syndrome neonatal [Unknown]
